FAERS Safety Report 7926324-9 (Version None)
Quarter: 2011Q4

REPORT INFORMATION
  Report Type: 
  Country: None (occurrence: None)
  Receive Date: 20111118
  Receipt Date: 20111110
  Transmission Date: 20120403
  Serious: No
  Sender: FDA-Public Use
  Company Number: US-BIOGENIDEC-2011BI017572

PATIENT
  Age: 36 Year
  Sex: Female

DRUGS (4)
  1. EFFEXOR [Concomitant]
     Indication: DEPRESSION
     Dates: start: 20110101, end: 20111101
  2. CYMBALTA [Concomitant]
     Indication: DEPRESSION
     Dates: start: 20111107
  3. AMANTADINE HCL [Concomitant]
  4. TYSABRI [Suspect]
     Indication: MULTIPLE SCLEROSIS
     Route: 042
     Dates: start: 20110429

REACTIONS (8)
  - URINARY TRACT INFECTION [None]
  - FATIGUE [None]
  - PAIN [None]
  - URINARY INCONTINENCE [None]
  - INCONTINENCE [None]
  - HEADACHE [None]
  - WEIGHT INCREASED [None]
  - DIZZINESS [None]
